FAERS Safety Report 22658518 (Version 1)
Quarter: 2023Q2

REPORT INFORMATION
  Report Type: Spontaneous
  Country: IN (occurrence: IN)
  Receive Date: 20230630
  Receipt Date: 20230630
  Transmission Date: 20230722
  Serious: Yes (Hospitalization, Other)
  Sender: FDA-Public Use
  Company Number: IN-Accord-363783

PATIENT
  Age: 55 Year
  Sex: Female

DRUGS (3)
  1. METHOTREXATE [Suspect]
     Active Substance: METHOTREXATE
     Indication: Psoriasis
  2. DOXYCYCLINE [Concomitant]
     Active Substance: DOXYCYCLINE
  3. AMOXICILLIN\CLAVULANIC ACID [Concomitant]
     Active Substance: AMOXICILLIN\CLAVULANIC ACID
     Dosage: TWICE DAILY FOR 5 DAYS

REACTIONS (9)
  - Accidental overdose [Unknown]
  - Pancytopenia [Recovered/Resolved]
  - Rash erythematous [Recovering/Resolving]
  - Mouth haemorrhage [Recovered/Resolved]
  - Vaginal haemorrhage [Recovered/Resolved]
  - Mouth ulceration [Unknown]
  - Skin lesion [Recovered/Resolved]
  - Hepatic enzyme increased [Recovered/Resolved]
  - Marrow hyperplasia [Unknown]
